FAERS Safety Report 8222838-5 (Version None)
Quarter: 2012Q1

REPORT INFORMATION
  Report Type: 
  Country: None (occurrence: None)
  Receive Date: 20120320
  Receipt Date: 20120314
  Transmission Date: 20120608
  Serious: Yes (Hospitalization)
  Sender: FDA-Public Use
  Company Number: US-ABBOTT-12P-163-0908529-00

PATIENT
  Sex: Female

DRUGS (8)
  1. VITAMIN B-12 [Concomitant]
     Indication: VITAMIN SUPPLEMENTATION
     Route: 050
  2. METHOTREXATE [Concomitant]
     Indication: RHEUMATOID ARTHRITIS
     Route: 048
     Dates: end: 20120101
  3. LISINOPRIL [Concomitant]
     Indication: HYPERTENSION
     Dosage: 1/2 TABLET ONCE DAILY
     Route: 048
  4. METHOTREXATE [Concomitant]
     Route: 048
     Dates: start: 20120101
  5. HUMIRA [Suspect]
     Indication: RHEUMATOID ARTHRITIS
     Dates: start: 20100101, end: 20120223
  6. CELEBREX [Concomitant]
     Indication: PAIN
     Route: 048
  7. FOLIC ACID [Concomitant]
     Indication: PRODUCT USED FOR UNKNOWN INDICATION
     Route: 048
  8. VITAMIN D [Concomitant]
     Indication: PRODUCT USED FOR UNKNOWN INDICATION

REACTIONS (4)
  - RHEUMATOID ARTHRITIS [None]
  - PAIN [None]
  - HERPES ZOSTER [None]
  - GAIT DISTURBANCE [None]
